FAERS Safety Report 10233101 (Version 1)
Quarter: 2014Q2

REPORT INFORMATION
  Report Type: Spontaneous
  Country: US (occurrence: US)
  Receive Date: 20140612
  Receipt Date: 20140612
  Transmission Date: 20141212
  Serious: No
  Sender: FDA-Public Use
  Company Number: US-BAYER-2014-086211

PATIENT
  Sex: Female

DRUGS (3)
  1. ADEMPAS [Suspect]
     Indication: PRODUCT USED FOR UNKNOWN INDICATION
  2. LETAIRIS [Suspect]
     Indication: PULMONARY HYPERTENSION
     Dosage: 5 MG, QD
     Dates: start: 20120912
  3. ADCIRCA [Concomitant]

REACTIONS (12)
  - Faeces discoloured [None]
  - Increased appetite [None]
  - International normalised ratio increased [None]
  - Sleep disorder [None]
  - Hyperhidrosis [None]
  - Chills [None]
  - Muscle spasms [None]
  - Visual impairment [None]
  - Dizziness [None]
  - Nasal congestion [None]
  - Hot flush [None]
  - Fatigue [None]
